FAERS Safety Report 7480048-3 (Version None)
Quarter: 2011Q2

REPORT INFORMATION
  Report Type: 
  Country: None (occurrence: None)
  Receive Date: 20110516
  Receipt Date: 20110505
  Transmission Date: 20111010
  Serious: No
  Sender: FDA-Public Use
  Company Number: US-BIOGENIDEC-2011BI004633

PATIENT
  Age: 42 Year
  Sex: Male

DRUGS (2)
  1. TYSABRI [Suspect]
     Indication: MULTIPLE SCLEROSIS
     Route: 042
     Dates: start: 20060822
  2. TYSABRI [Suspect]
     Route: 042
     Dates: start: 20050101, end: 20050101

REACTIONS (11)
  - FATIGUE [None]
  - GAIT DISTURBANCE [None]
  - LOSS OF CONTROL OF LEGS [None]
  - MULTIPLE SCLEROSIS RELAPSE [None]
  - INFLUENZA LIKE ILLNESS [None]
  - BALANCE DISORDER [None]
  - MUSCULAR WEAKNESS [None]
  - PREMENSTRUAL SYNDROME [None]
  - EXERCISE TOLERANCE DECREASED [None]
  - TEMPERATURE INTOLERANCE [None]
  - APHASIA [None]
